FAERS Safety Report 6051650-0 (Version None)
Quarter: 2009Q1

REPORT INFORMATION
  Report Type: 
  Country: None (occurrence: None)
  Receive Date: 20090126
  Receipt Date: 20090116
  Transmission Date: 20090719
  Serious: Yes (Other)
  Sender: FDA-Public Use
  Company Number: BR-JNJFOC-20090104847

PATIENT
  Sex: Male
  Weight: 38 kg

DRUGS (2)
  1. TYLENOL [Suspect]
  2. TYLENOL [Suspect]
     Indication: PYREXIA

REACTIONS (2)
  - ANAPHYLACTIC SHOCK [None]
  - LARYNGEAL OEDEMA [None]
